FAERS Safety Report 8194028-6 (Version None)
Quarter: 2012Q1

REPORT INFORMATION
  Report Type: 
  Country: None (occurrence: None)
  Receive Date: 20120308
  Receipt Date: 20120302
  Transmission Date: 20120608
  Serious: Yes (Hospitalization)
  Sender: FDA-Public Use
  Company Number: US-MERCK-1202USA01715

PATIENT
  Age: 53 Year
  Sex: Male

DRUGS (4)
  1. CRESTOR [Concomitant]
     Route: 065
  2. SERTRALINE HYDROCHLORIDE [Concomitant]
     Route: 065
  3. JANUMET [Suspect]
     Indication: TYPE 2 DIABETES MELLITUS
     Route: 048
     Dates: start: 20110801
  4. BUPROPION HYDROCHLORIDE [Concomitant]
     Route: 065

REACTIONS (3)
  - BLOOD GLUCOSE INCREASED [None]
  - FEELING ABNORMAL [None]
  - CEREBROVASCULAR ACCIDENT [None]
